FAERS Safety Report 9689501 (Version 2)
Quarter: 2014Q1

REPORT INFORMATION
  Report Type: Spontaneous
  Country: KR (occurrence: KR)
  Receive Date: 20131114
  Receipt Date: 20140115
  Transmission Date: 20141002
  Serious: Yes (Other)
  Sender: FDA-Public Use
  Company Number: KR-ROCHE-1301439

PATIENT
  Age: 86 Year
  Sex: Female

DRUGS (2)
  1. AVASTIN [Suspect]
     Indication: AGE-RELATED MACULAR DEGENERATION
     Route: 050
  2. OFLOXACIN [Concomitant]
     Dosage: FOR 3 DAYS AFTER BEVACIZUMAB INJECTION.
     Route: 047

REACTIONS (2)
  - Retinal pigment epithelial tear [Unknown]
  - Off label use [Unknown]
